FAERS Safety Report 16039708 (Version 1)
Quarter: 2019Q1

REPORT INFORMATION
  Report Type: Spontaneous
  Country: US (occurrence: US)
  Receive Date: 20190306
  Receipt Date: 20190306
  Transmission Date: 20190418
  Serious: Yes (Hospitalization, Other)
  Sender: FDA-Public Use
  Company Number: US-009507513-1902USA010839

PATIENT
  Age: 74 Year
  Sex: Male

DRUGS (18)
  1. IBRANCE [Suspect]
     Active Substance: PALBOCICLIB
     Dosage: 125 MG DAILY, 3 ON/1 OFF SCHEDULE
     Dates: start: 20151124, end: 20160129
  2. IBRANCE [Suspect]
     Active Substance: PALBOCICLIB
     Dosage: CYCLE 12 DELAYED FOR 5 DAYS
     Dates: start: 20170731
  3. IBRANCE [Suspect]
     Active Substance: PALBOCICLIB
     Dosage: CYCLE 4
     Dates: start: 20160907
  4. IBRANCE [Suspect]
     Active Substance: PALBOCICLIB
     Dosage: CYCLE 8
     Dates: start: 20161227
  5. IBRANCE [Suspect]
     Active Substance: PALBOCICLIB
     Dosage: 125 MG DAILY, 3 ON/1 OFF SCHEDULE
     Dates: start: 20160302, end: 20160405
  6. IBRANCE [Suspect]
     Active Substance: PALBOCICLIB
     Dosage: CYCLE 7
     Dates: start: 20161128
  7. IBRANCE [Suspect]
     Active Substance: PALBOCICLIB
     Dosage: CYCLE 5
     Dates: start: 20161007
  8. IBRANCE [Suspect]
     Active Substance: PALBOCICLIB
     Dosage: CYCLE 14
     Dates: start: 20170905
  9. IBRANCE [Suspect]
     Active Substance: PALBOCICLIB
     Dosage: CYCLE 6
     Dates: start: 20161031
  10. IBRANCE [Suspect]
     Active Substance: PALBOCICLIB
     Dosage: CYCLE 10
     Dates: start: 201702, end: 20170228
  11. IBRANCE [Suspect]
     Active Substance: PALBOCICLIB
     Dosage: CYCLE 11 RESUMED
     Dates: start: 20170628
  12. TEMODAR [Suspect]
     Active Substance: TEMOZOLOMIDE
     Dosage: UNK, QD (100 MG DAILY)
     Route: 048
     Dates: start: 20161005
  13. IBRANCE [Suspect]
     Active Substance: PALBOCICLIB
     Dosage: UNK
     Dates: start: 20160405, end: 20160907
  14. IBRANCE [Suspect]
     Active Substance: PALBOCICLIB
     Dosage: CYCLE 13
     Dates: start: 20170828
  15. IBRANCE [Suspect]
     Active Substance: PALBOCICLIB
     Dosage: CYCLE 16
     Dates: start: 20171101
  16. IBRANCE [Suspect]
     Active Substance: PALBOCICLIB
     Dosage: CYCLE 9
     Dates: start: 20170125
  17. IBRANCE [Suspect]
     Active Substance: PALBOCICLIB
     Dosage: CYCLE 11
     Dates: start: 20170323, end: 20170405
  18. IBRANCE [Suspect]
     Active Substance: PALBOCICLIB
     Dosage: CYCLE 15
     Dates: start: 20171005

REACTIONS (7)
  - Fatigue [Unknown]
  - Syncope [Recovered/Resolved]
  - Skin laceration [Unknown]
  - Hypothyroidism [Unknown]
  - Balance disorder [Recovering/Resolving]
  - Orthostatic hypotension [Unknown]
  - Hyponatraemia [Unknown]

NARRATIVE: CASE EVENT DATE: 20161018
